FAERS Safety Report 6637139-6 (Version None)
Quarter: 2010Q1

REPORT INFORMATION
  Report Type: 
  Country: None (occurrence: None)
  Receive Date: 20100316
  Receipt Date: 20100104
  Transmission Date: 20100710
  Serious: No
  Sender: FDA-Public Use
  Company Number: US-ABBOTT-10P-163-0617623-00

PATIENT
  Sex: Female
  Weight: 74.91 kg

DRUGS (4)
  1. TRILIPIX [Suspect]
     Indication: BLOOD TRIGLYCERIDES INCREASED
     Dates: start: 20090801, end: 20091214
  2. CRESTOR [Suspect]
     Indication: BLOOD CHOLESTEROL INCREASED
     Dates: start: 20070101, end: 20091214
  3. PRINZIDE [Concomitant]
     Indication: HYPERTENSION
  4. VOLTAREN [Concomitant]
     Indication: ARTHRITIS

REACTIONS (1)
  - MYALGIA [None]
